FAERS Safety Report 24639817 (Version 1)
Quarter: 2024Q4

REPORT INFORMATION
  Report Type: Spontaneous
  Country: US (occurrence: US)
  Receive Date: 20241120
  Receipt Date: 20241120
  Transmission Date: 20250114
  Serious: Yes (Other)
  Sender: AUROBINDO
  Company Number: US-MLMSERVICE-20241105-PI244936-00071-1

PATIENT
  Age: 72 Year
  Sex: Male

DRUGS (3)
  1. BUDESONIDE [Suspect]
     Active Substance: BUDESONIDE
     Indication: Asthma-chronic obstructive pulmonary disease overlap syndrome
     Dosage: HIGH DOSE
     Dates: start: 2016
  2. MOMETASONE FUROATE MONOHYDRATE [Suspect]
     Active Substance: MOMETASONE FUROATE MONOHYDRATE
     Indication: Asthma-chronic obstructive pulmonary disease overlap syndrome
     Dosage: HIGH DOSE
     Dates: start: 2016
  3. FLUTICASONE FUROATE\SALMETEROL XINAFOATE [Suspect]
     Active Substance: FLUTICASONE FUROATE\SALMETEROL XINAFOATE
     Indication: Asthma-chronic obstructive pulmonary disease overlap syndrome
     Dosage: 1 DOSAGE FORM, TWO TIMES A DAY
     Dates: start: 2016

REACTIONS (1)
  - Osteonecrosis [Recovering/Resolving]
